FAERS Safety Report 6356901-0 (Version None)
Quarter: 2009Q3

REPORT INFORMATION
  Report Type: 
  Country: None (occurrence: None)
  Receive Date: 20090910
  Receipt Date: 20090910
  Transmission Date: 20100115
  Serious: Yes (Hospitalization)
  Sender: FDA-Public Use
  Company Number: None

PATIENT
  Age: 72 Year
  Sex: Male
  Weight: 91.3 kg

DRUGS (1)
  1. METOPROLOL TARTRATE [Suspect]
     Dosage: 6.25MG BID PO
     Route: 048
     Dates: start: 20061204, end: 20090905

REACTIONS (1)
  - BRADYCARDIA [None]
